FAERS Safety Report 12155113 (Version 2)
Quarter: 2017Q1

REPORT INFORMATION
  Report Type: Spontaneous
  Country: US (occurrence: US)
  Receive Date: 20160307
  Receipt Date: 20170331
  Transmission Date: 20170428
  Serious: Yes (Death, Hospitalization)
  Sender: FDA-Public Use
  Company Number: US-ASTRAZENECA-2016SE15843

PATIENT
  Age: 23333 Day
  Sex: Male

DRUGS (5)
  1. BRILINTA [Suspect]
     Active Substance: TICAGRELOR
     Indication: ACUTE CORONARY SYNDROME
     Route: 048
  2. VITAMIN D [Concomitant]
     Active Substance: CHOLECALCIFEROL
  3. VITAMIN B12 [Concomitant]
     Active Substance: CYANOCOBALAMIN
  4. BRILINTA [Suspect]
     Active Substance: TICAGRELOR
     Indication: MYOCARDIAL INFARCTION
     Route: 048
  5. RILUZOLE. [Concomitant]
     Active Substance: RILUZOLE
     Indication: AMYOTROPHIC LATERAL SCLEROSIS
     Route: 048

REACTIONS (8)
  - Death [Fatal]
  - Speech disorder [Unknown]
  - Dyspnoea [Unknown]
  - Fatigue [Unknown]
  - Dysphagia [Unknown]
  - Muscle twitching [Unknown]
  - Amyotrophic lateral sclerosis [Unknown]
  - Palatal disorder [Unknown]

NARRATIVE: CASE EVENT DATE: 20160921
